FAERS Safety Report 23292374 (Version 2)
Quarter: 2023Q4

REPORT INFORMATION
  Report Type: Spontaneous
  Country: US (occurrence: US)
  Receive Date: 20231213
  Receipt Date: 20231214
  Transmission Date: 20240110
  Serious: Yes (Life-Threatening, Hospitalization, Other)
  Sender: FDA-Public Use
  Company Number: US-PFIZER INC-PV202300196807

PATIENT
  Age: 83 Year
  Sex: Male

DRUGS (2)
  1. AMIODARONE HYDROCHLORIDE [Suspect]
     Active Substance: AMIODARONE HYDROCHLORIDE
     Indication: Ventricular tachycardia
     Dosage: UNK
  2. MEXILETINE [Suspect]
     Active Substance: MEXILETINE
     Indication: Ventricular tachycardia
     Dosage: UNK

REACTIONS (1)
  - Treatment failure [Unknown]
